FAERS Safety Report 7623981-1 (Version None)
Quarter: 2011Q3

REPORT INFORMATION
  Report Type: 
  Country: None (occurrence: None)
  Receive Date: 20110720
  Receipt Date: 20110602
  Transmission Date: 20111222
  Serious: No
  Sender: FDA-Public Use
  Company Number: US-BRISTOL-MYERS SQUIBB COMPANY-15799927

PATIENT
  Sex: Male

DRUGS (3)
  1. FOLIC ACID [Concomitant]
  2. VITAMIN B-12 [Concomitant]
     Dosage: INJ
  3. YERVOY [Suspect]
     Dosage: NO OF DOSES:3

REACTIONS (3)
  - BLOOD POTASSIUM DECREASED [None]
  - ARTHRALGIA [None]
  - STOMATITIS [None]
